FAERS Safety Report 4609617-2 (Version None)
Quarter: 2005Q1

REPORT INFORMATION
  Report Type: 
  Country: None (occurrence: None)
  Receive Date: 20050314
  Receipt Date: 20050314
  Transmission Date: 20050727
  Serious: Yes (Hospitalization)
  Sender: FDA-Public Use
  Company Number: None

PATIENT
  Age: 38 Year
  Sex: Male
  Weight: 61.6892 kg

DRUGS (1)
  1. PROTOPIC [Suspect]
     Indication: DERMATITIS
     Dosage: SMALL AMOUNT  AS NEEDED  TOPICAL
     Route: 061
     Dates: start: 20000801, end: 20041101

REACTIONS (2)
  - DIFFUSE LARGE B-CELL LYMPHOMA [None]
  - METASTASIS [None]
